FAERS Safety Report 13445706 (Version 5)
Quarter: 2017Q2

REPORT INFORMATION
  Report Type: Report from Study
  Country: US (occurrence: US)
  Receive Date: 20170416
  Receipt Date: 20170622
  Transmission Date: 20170830
  Serious: Yes (Death, Hospitalization)
  Sender: FDA-Public Use
  Company Number: US-BIOGEN-2017BI00386753

PATIENT
  Sex: Male

DRUGS (2)
  1. AVONEX [Suspect]
     Active Substance: INTERFERON BETA-1A
     Indication: MULTIPLE SCLEROSIS
     Route: 065
     Dates: start: 20011201
  2. AVONEX [Suspect]
     Active Substance: INTERFERON BETA-1A
     Route: 065
     Dates: start: 20130531, end: 2015

REACTIONS (1)
  - Multiple sclerosis [Fatal]

NARRATIVE: CASE EVENT DATE: 2015
